FAERS Safety Report 25331454 (Version 1)
Quarter: 2025Q2

REPORT INFORMATION
  Report Type: Spontaneous
  Country: JP (occurrence: JP)
  Receive Date: 20250519
  Receipt Date: 20250519
  Transmission Date: 20250716
  Serious: Yes (Death)
  Sender: ELI LILLY AND COMPANY
  Company Number: JP-Merck Healthcare KGaA-2025023105

PATIENT
  Age: 65 Year
  Sex: Male

DRUGS (4)
  1. ERBITUX [Suspect]
     Active Substance: CETUXIMAB
     Indication: Colorectal cancer metastatic
     Dosage: 400 MG/M2, WEEKLY (1/W)
     Route: 041
  2. ERBITUX [Suspect]
     Active Substance: CETUXIMAB
     Dosage: 250 MG/M2, WEEKLY (1/W)
  3. ENCORAFENIB [Suspect]
     Active Substance: ENCORAFENIB
     Indication: Colorectal cancer metastatic
     Dosage: 300 MG, DAILY
     Route: 065
  4. PREDNISOLONE [Suspect]
     Active Substance: PREDNISOLONE
     Indication: Sarcoidosis
     Dosage: 5 MG, DAILY
     Route: 065

REACTIONS (7)
  - Pancreatitis acute [Fatal]
  - Duodenal ulcer perforation [Fatal]
  - Abdominal abscess [Fatal]
  - Enterocutaneous fistula [Fatal]
  - Acute respiratory distress syndrome [Fatal]
  - Pulmonary oedema [Fatal]
  - Malignant neoplasm progression [Fatal]
